FAERS Safety Report 24085387 (Version 1)
Quarter: 2024Q3

REPORT INFORMATION
  Report Type: Spontaneous
  Country: GB (occurrence: GB)
  Receive Date: 20240712
  Receipt Date: 20240712
  Transmission Date: 20241016
  Serious: Yes (Disabling, Other)
  Sender: DAIICHI
  Company Number: None

PATIENT
  Age: 66 Year
  Sex: Female
  Weight: 114 kg

DRUGS (6)
  1. EDOXABAN [Suspect]
     Active Substance: EDOXABAN
     Indication: Thrombosis
     Dosage: 60 MG, QD
     Route: 048
     Dates: start: 20230728, end: 20240430
  2. SCHERIPROCT [CINCHOCAINE HYDROCHLORIDE;PREDNISOLONE CAPROATE] [Concomitant]
     Indication: Product used for unknown indication
     Dosage: 1 DF, BID, APPLY THINLY
     Route: 061
     Dates: start: 20240424, end: 20240619
  3. TRIAMCINOLONE ACETONIDE [Concomitant]
     Active Substance: TRIAMCINOLONE ACETONIDE
     Indication: Product used for unknown indication
     Dosage: 10 MG
     Route: 065
     Dates: start: 20240610, end: 20240611
  4. ACIDEX ADVANCE [Concomitant]
     Indication: Ill-defined disorder
     Dosage: UNK,TAKE 5ML TO 10ML AFTER MEALS AND AT BEDTIME WHE...
     Route: 048
     Dates: start: 20230728
  5. CODEINE PHOSPHATE [Concomitant]
     Active Substance: CODEINE PHOSPHATE
     Indication: Product used for unknown indication
     Dosage: 1 DF, ONCE EVERY 6HR (WHEN NECESSARY)
     Route: 048
     Dates: start: 20231218
  6. APIXABAN [Concomitant]
     Active Substance: APIXABAN
     Indication: Thrombosis
     Dosage: 1 DF, BID
     Route: 048
     Dates: start: 20240430

REACTIONS (2)
  - Fatigue [Recovered/Resolved]
  - Muscular weakness [Recovered/Resolved]

NARRATIVE: CASE EVENT DATE: 20240626
